FAERS Safety Report 20974203 (Version 2)
Quarter: 2022Q2

REPORT INFORMATION
  Report Type: Spontaneous
  Country: US (occurrence: US)
  Receive Date: 20220617
  Receipt Date: 20220629
  Transmission Date: 20220721
  Serious: No
  Sender: FDA-Public Use
  Company Number: US-AIMMUNE THERAPEUTICS, INC.-2022AIMT00472

PATIENT

DRUGS (3)
  1. PALFORZIA [Suspect]
     Active Substance: PEANUT
     Indication: Food allergy
     Dosage: 120 MG, 1X/DAY
     Route: 048
     Dates: start: 20220516
  2. PALFORZIA [Suspect]
     Active Substance: PEANUT
     Dosage: 100 MG, 1X/DAY, DOSE DECREASED
     Route: 048
     Dates: start: 20220602, end: 20220608
  3. PALFORZIA [Suspect]
     Active Substance: PEANUT
     Dosage: 140 MG, 1X/DAY, DOSE INCREASED
     Route: 048
     Dates: start: 20220609

REACTIONS (4)
  - Abdominal discomfort [Recovered/Resolved]
  - Pruritus [Recovered/Resolved]
  - Nausea [Recovered/Resolved]
  - Vomiting [Recovered/Resolved]

NARRATIVE: CASE EVENT DATE: 20220501
